FAERS Safety Report 24869719 (Version 2)
Quarter: 2025Q1

REPORT INFORMATION
  Report Type: Report from Study
  Country: US (occurrence: US)
  Receive Date: 20250121
  Receipt Date: 20250224
  Transmission Date: 20250409
  Serious: Yes (Other)
  Sender: BAYER HEALTHCARE PHARMACEUTICALS INC.
  Company Number: US-BAYER-2024A175843

PATIENT
  Age: 83 Year
  Sex: Male

DRUGS (6)
  1. NUBEQA [Suspect]
     Active Substance: DAROLUTAMIDE
     Indication: Prostate cancer metastatic
  2. LIPITOR [Concomitant]
     Active Substance: ATORVASTATIN CALCIUM
  3. PANTOPRAZOLE SODIUM [Concomitant]
     Active Substance: PANTOPRAZOLE SODIUM
  4. ENTRESTO [Concomitant]
     Active Substance: SACUBITRIL\VALSARTAN
  5. LASIX [Concomitant]
     Active Substance: FUROSEMIDE
  6. METOPROLOL SUCCINATE [Concomitant]
     Active Substance: METOPROLOL SUCCINATE

REACTIONS (19)
  - Lower limb fracture [Recovered/Resolved]
  - Cervical vertebral fracture [None]
  - Neuropathy peripheral [None]
  - Aortic valve disease [None]
  - Spinal column injury [None]
  - Muscular weakness [None]
  - Wound [Not Recovered/Not Resolved]
  - Localised infection [Unknown]
  - Skin abrasion [None]
  - Impaired healing [None]
  - Loss of personal independence in daily activities [None]
  - Frustration tolerance decreased [None]
  - Balance disorder [None]
  - Weight increased [Not Recovered/Not Resolved]
  - Decreased appetite [None]
  - Headache [None]
  - Pain [None]
  - Anger [None]
  - Impatience [None]

NARRATIVE: CASE EVENT DATE: 20230101
